FAERS Safety Report 22590024 (Version 1)
Quarter: 2023Q2

REPORT INFORMATION
  Report Type: Spontaneous
  Country: US (occurrence: US)
  Receive Date: 20230612
  Receipt Date: 20230612
  Transmission Date: 20230722
  Serious: No
  Sender: FDA-Public Use
  Company Number: US-SANOFI-01646393

PATIENT
  Age: 88 Year
  Sex: Male

DRUGS (1)
  1. MULTAQ [Suspect]
     Active Substance: DRONEDARONE
     Dosage: UNK

REACTIONS (3)
  - Skin ulcer [Recovered/Resolved]
  - Tooth extraction [Unknown]
  - Impaired healing [Not Recovered/Not Resolved]
